FAERS Safety Report 7106457-X (Version None)
Quarter: 2010Q4

REPORT INFORMATION
  Report Type: 
  Country: None (occurrence: None)
  Receive Date: 20101116
  Receipt Date: 20101110
  Transmission Date: 20110411
  Serious: Yes (Death)
  Sender: FDA-Public Use
  Company Number: CO-GENENTECH-309565

PATIENT
  Sex: Female

DRUGS (1)
  1. MABTHERA [Suspect]
     Indication: SYSTEMIC LUPUS ERYTHEMATOSUS
     Dosage: 375 MG, Q15D
     Route: 042
     Dates: start: 20101005, end: 20101012

REACTIONS (2)
  - DISEASE PROGRESSION [None]
  - SYSTEMIC LUPUS ERYTHEMATOSUS [None]
